FAERS Safety Report 18042469 (Version 1)
Quarter: 2020Q3

REPORT INFORMATION
  Report Type: Spontaneous
  Country: US (occurrence: US)
  Receive Date: 20200716
  Receipt Date: 20200716
  Transmission Date: 20201103
  Serious: No
  Sender: FDA-Public Use
  Company Number: None

PATIENT
  Age: 66 Year
  Sex: Male
  Weight: 114 kg

DRUGS (1)
  1. PIOGLITAZONE (PIOGLITAZONE HCL 30MG TAB) [Suspect]
     Active Substance: PIOGLITAZONE HYDROCHLORIDE
     Indication: DIABETES MELLITUS
     Route: 048
     Dates: start: 20190604, end: 20190716

REACTIONS (3)
  - Agitation [None]
  - Mood swings [None]
  - Nervousness [None]

NARRATIVE: CASE EVENT DATE: 20190716
